FAERS Safety Report 6578756-1 (Version None)
Quarter: 2010Q1

REPORT INFORMATION
  Report Type: 
  Country: None (occurrence: None)
  Receive Date: 20100202
  Receipt Date: 20100122
  Transmission Date: 20100710
  Serious: Yes (Hospitalization, Other)
  Sender: FDA-Public Use
  Company Number: 2010AP000149

PATIENT
  Sex: Male

DRUGS (4)
  1. PAROXETINE HCL [Suspect]
     Dosage: 20 MG;PO
     Route: 048
     Dates: start: 20021101
  2. CHLORDIAZEPOXIDE [Concomitant]
  3. PROMETHAZINE [Concomitant]
  4. CITALOPRAM HYDROBROMIDE [Concomitant]

REACTIONS (2)
  - INTENTIONAL SELF-INJURY [None]
  - SUICIDE ATTEMPT [None]
